FAERS Safety Report 7095607-X (Version None)
Quarter: 2010Q4

REPORT INFORMATION
  Report Type: 
  Country: None (occurrence: None)
  Receive Date: 20101102
  Receipt Date: 20101028
  Transmission Date: 20110411
  Serious: Yes (Hospitalization, Other)
  Sender: FDA-Public Use
  Company Number: SP03205

PATIENT
  Age: 60 Year
  Sex: Female

DRUGS (4)
  1. VISICOL [Suspect]
     Indication: COLONOSCOPY
     Dosage: (50 GM), ORAL
     Route: 048
     Dates: start: 20101007, end: 20101007
  2. OLMESARTAN MEDOXOMIL [Concomitant]
  3. AMLODIPINE BESYLATE [Concomitant]
  4. DIPYRIDAMOLE [Concomitant]

REACTIONS (4)
  - HYPOAESTHESIA [None]
  - HYPOCALCAEMIA [None]
  - MALAISE [None]
  - RENAL FAILURE [None]
